FAERS Safety Report 22128041 (Version 1)
Quarter: 2023Q1

REPORT INFORMATION
  Report Type: Report from Study
  Country: FR (occurrence: FR)
  Receive Date: 20230323
  Receipt Date: 20230323
  Transmission Date: 20230418
  Serious: Yes (Hospitalization, Other)
  Sender: FDA-Public Use
  Company Number: FR-CELLTRION INC.-2023FR000702

PATIENT

DRUGS (22)
  1. RITUXIMAB [Suspect]
     Active Substance: RITUXIMAB
     Indication: Diffuse large B-cell lymphoma
     Dosage: 375 MG/M2, EVERY 3 WEEKS [DATE OF LAST DOSE PRIOR TO EVENT: 14/SEP/2022, LATEST DOSE ADMINISTERED ON
     Route: 042
     Dates: start: 20220713, end: 20220914
  2. RITUXIMAB [Suspect]
     Active Substance: RITUXIMAB
     Dosage: 375 MG/M2, EVERY 3 WEEKS
     Route: 042
     Dates: start: 20221107, end: 20221107
  3. BENDAMUSTINE [Suspect]
     Active Substance: BENDAMUSTINE
     Indication: Diffuse large B-cell lymphoma
     Dosage: 90 MG/M2
     Route: 042
     Dates: start: 20221107, end: 20221108
  4. BENDAMUSTINE [Suspect]
     Active Substance: BENDAMUSTINE
     Dosage: 90 MG/M2
     Route: 042
     Dates: start: 20220802, end: 20220803
  5. BENDAMUSTINE [Suspect]
     Active Substance: BENDAMUSTINE
     Dosage: 90 MG/M2
     Route: 042
     Dates: start: 20220914, end: 20220915
  6. BENDAMUSTINE [Suspect]
     Active Substance: BENDAMUSTINE
     Dosage: 90 MG/M2
     Route: 042
     Dates: start: 20220824, end: 20220825
  7. BENDAMUSTINE [Suspect]
     Active Substance: BENDAMUSTINE
     Dosage: 90 MG/M2, 1X/DAY (ON DAYS 1 AND 2 OF EVERY 21 DAYS)
     Route: 042
     Dates: start: 20220713, end: 20220714
  8. XARELTO [Concomitant]
     Active Substance: RIVAROXABAN
     Dosage: UNK
     Dates: start: 20210830
  9. FILGRASTIM [Concomitant]
     Active Substance: FILGRASTIM
     Dosage: UNK
     Dates: start: 20221130, end: 20221217
  10. LOVENOX [Concomitant]
     Active Substance: ENOXAPARIN SODIUM
     Dosage: UNK
     Dates: start: 20221129, end: 20221201
  11. FOLIC ACID [Concomitant]
     Active Substance: FOLIC ACID
     Dosage: UNK
     Dates: start: 20221212
  12. XANAX [Concomitant]
     Active Substance: ALPRAZOLAM
     Dosage: UNK
     Dates: start: 20221221
  13. DIGOXIN [Concomitant]
     Active Substance: DIGOXIN
     Dosage: UNK
     Dates: start: 20221203
  14. PHOCYTAN [Concomitant]
     Active Substance: .ALPHA.-GLUCOSE-1-PHOSPHATE
     Dosage: UNK
     Dates: start: 20221206, end: 20221213
  15. FUROSEMIDE [Concomitant]
     Active Substance: FUROSEMIDE
     Dosage: UNK
     Dates: start: 20221221, end: 20221223
  16. BISOPROLOL [Concomitant]
     Active Substance: BISOPROLOL
     Dosage: UNK
     Dates: start: 20210218
  17. TOPLEXIL [OXOMEMAZINE] [Concomitant]
     Dosage: UNK
     Dates: start: 20221221
  18. ATROVENT [Concomitant]
     Active Substance: IPRATROPIUM BROMIDE
     Dosage: UNK
     Dates: start: 20221227
  19. BACTRIM [Concomitant]
     Active Substance: SULFAMETHOXAZOLE\TRIMETHOPRIM
     Dosage: UNK
     Dates: start: 20210602
  20. TERBUTALINE [Concomitant]
     Active Substance: TERBUTALINE
     Dosage: UNK
     Dates: start: 20230103
  21. VALACYCLOVIR HYDROCHLORIDE [Concomitant]
     Active Substance: VALACYCLOVIR HYDROCHLORIDE
     Dosage: UNK
     Dates: start: 20210218
  22. DOLIPRANE [Concomitant]
     Active Substance: ACETAMINOPHEN
     Dosage: UNK

REACTIONS (3)
  - Pneumonia cytomegaloviral [Not Recovered/Not Resolved]
  - Bronchopulmonary aspergillosis [Not Recovered/Not Resolved]
  - Off label use [Unknown]

NARRATIVE: CASE EVENT DATE: 20220713
